FAERS Safety Report 6218527-9 (Version None)
Quarter: 2009Q2

REPORT INFORMATION
  Report Type: 
  Country: None (occurrence: None)
  Receive Date: 20090608
  Receipt Date: 20090529
  Transmission Date: 20091009
  Serious: Yes (Hospitalization)
  Sender: FDA-Public Use
  Company Number: JP-ABBOTT-09P-087-0577739-00

PATIENT
  Age: 86 Year
  Sex: Male

DRUGS (2)
  1. LEUPLIN FOR INJECTION 3.75 MG [Suspect]
     Indication: PROSTATE CANCER
     Route: 058
     Dates: start: 20090401, end: 20090401
  2. PROSTAL [Suspect]
     Indication: DRUG USE FOR UNKNOWN INDICATION
     Route: 048

REACTIONS (1)
  - RENAL FAILURE CHRONIC [None]
